FAERS Safety Report 23790646 (Version 2)
Quarter: 2024Q3

REPORT INFORMATION
  Report Type: Spontaneous
  Country: CA (occurrence: CA)
  Receive Date: 20240427
  Receipt Date: 20240821
  Transmission Date: 20241016
  Serious: Yes (Hospitalization, Other)
  Sender: VELOXIS PHARMACEUTICALS
  Company Number: CA-VELOXIS PHARMACEUTICALS, INC.-2024-VEL-00226

PATIENT
  Age: 57 Year
  Sex: Female

DRUGS (1)
  1. TACROLIMUS [Suspect]
     Active Substance: TACROLIMUS
     Indication: Immunosuppressant drug therapy
     Dosage: PROLONGED-RELEASE TABLET, POST-OP DAY (POD) 0

REACTIONS (9)
  - Kidney transplant rejection [Unknown]
  - Renal infarct [Unknown]
  - Renal necrosis [Unknown]
  - Immunosuppressant drug level increased [Unknown]
  - Renal tubular necrosis [Unknown]
  - Urine output decreased [Unknown]
  - Thrombotic microangiopathy [Recovered/Resolved]
  - Thrombosis [Unknown]
  - Thrombocytopenia [Recovered/Resolved]
